FAERS Safety Report 16584424 (Version 1)
Quarter: 2019Q3

REPORT INFORMATION
  Report Type: Spontaneous
  Country: US (occurrence: US)
  Receive Date: 20190604
  Receipt Date: 20190604
  Transmission Date: 20191004
  Serious: No
  Sender: FDA-Public Use
  Company Number: None

PATIENT
  Age: 58 Year
  Sex: Female

DRUGS (2)
  1. ESTRADIOL PATCH 0.075MG [Suspect]
     Active Substance: ESTRADIOL
     Indication: ATROPHIC VULVOVAGINITIS
     Route: 062
     Dates: start: 20190222, end: 20190412
  2. ESTRADIOL PATCH 0.075MG [Suspect]
     Active Substance: ESTRADIOL
     Indication: MENOPAUSAL SYMPTOMS
     Route: 062
     Dates: start: 20190222, end: 20190412

REACTIONS (2)
  - Affective disorder [None]
  - Product substitution issue [None]

NARRATIVE: CASE EVENT DATE: 20190222
